FAERS Safety Report 15968830 (Version 1)
Quarter: 2019Q1

REPORT INFORMATION
  Report Type: Report from Study
  Country: US (occurrence: US)
  Receive Date: 20190215
  Receipt Date: 20190215
  Transmission Date: 20190418
  Serious: Yes (Other)
  Sender: FDA-Public Use
  Company Number: US-SA-2019SA040051

PATIENT
  Age: 61 Year
  Sex: Male

DRUGS (2)
  1. CREON [Concomitant]
     Active Substance: PANCRELIPASE AMYLASE\PANCRELIPASE LIPASE\PANCRELIPASE PROTEASE
     Dosage: UNK
  2. INSULIN GLARGINE [Suspect]
     Active Substance: INSULIN GLARGINE
     Indication: PANCREATIC CARCINOMA
     Dosage: 60 U, QD
     Route: 058

REACTIONS (3)
  - Blood glucose increased [Unknown]
  - Unevaluable event [Unknown]
  - Pancreatic carcinoma [Not Recovered/Not Resolved]
